FAERS Safety Report 5205069-2 (Version None)
Quarter: 2007Q1

REPORT INFORMATION
  Report Type: 
  Country: None (occurrence: None)
  Receive Date: 20070110
  Receipt Date: 20061018
  Transmission Date: 20070707
  Serious: Yes (Other)
  Sender: FDA-Public Use
  Company Number: US-BRISTOL-MYERS SQUIBB COMPANY-13546296

PATIENT
  Age: 74 Year
  Sex: Female
  Weight: 71 kg

DRUGS (9)
  1. ABILIFY [Suspect]
     Indication: BIPOLAR DISORDER
  2. FOSAMAX [Concomitant]
  3. LOVASTATIN [Concomitant]
  4. LEVOXYL [Concomitant]
  5. ARICEPT [Concomitant]
  6. DITROPAN [Concomitant]
  7. BUPROPION HCL [Concomitant]
  8. TOPAMAX [Concomitant]
  9. TRAZODONE HCL [Concomitant]

REACTIONS (1)
  - PARKINSONISM [None]
